FAERS Safety Report 25279240 (Version 1)
Quarter: 2025Q2

REPORT INFORMATION
  Report Type: Spontaneous
  Country: GB (occurrence: GB)
  Receive Date: 20250507
  Receipt Date: 20250507
  Transmission Date: 20250717
  Serious: Yes (Hospitalization)
  Sender: ROCHE
  Company Number: None

PATIENT
  Age: 51 Year
  Sex: Female

DRUGS (7)
  1. MYCOPHENOLATE MOFETIL [Suspect]
     Active Substance: MYCOPHENOLATE MOFETIL
     Indication: Product used for unknown indication
     Route: 065
  2. CARBIMAZOLE [Concomitant]
     Active Substance: CARBIMAZOLE
  3. LATANOPROST [Concomitant]
     Active Substance: LATANOPROST
  4. LEVOTHYROXINE [Concomitant]
     Active Substance: LEVOTHYROXINE
  5. SUMATRIPTAN [Concomitant]
     Active Substance: SUMATRIPTAN
  6. Estriol 0.01% cream with applicator [Concomitant]
  7. Evorel Conti patches (Janssen-Cilag Ltd) [Concomitant]

REACTIONS (1)
  - Gingival hypertrophy [Unknown]
